FAERS Safety Report 5021202-X (Version None)
Quarter: 2006Q2

REPORT INFORMATION
  Report Type: 
  Country: None (occurrence: None)
  Receive Date: 20060425
  Receipt Date: 20050311
  Transmission Date: 20061013
  Serious: No
  Sender: FDA-Public Use
  Company Number: WAES 0503USA01866

PATIENT
  Age: 6 Year
  Sex: Female
  Weight: 26.3086 kg

DRUGS (6)
  1. SINGULAIR [Suspect]
     Indication: ASTHMA
     Dosage: SEE IMAGE
     Route: 048
     Dates: start: 20031001, end: 20040501
  2. SINGULAIR [Suspect]
     Indication: HYPERSENSITIVITY
     Dosage: SEE IMAGE
     Route: 048
     Dates: start: 20031001, end: 20040501
  3. SINGULAIR [Suspect]
     Indication: ASTHMA
     Dosage: SEE IMAGE
     Route: 048
     Dates: start: 20041015, end: 20050215
  4. SINGULAIR [Suspect]
     Indication: HYPERSENSITIVITY
     Dosage: SEE IMAGE
     Route: 048
     Dates: start: 20041015, end: 20050215
  5. . [Concomitant]
  6. ADVAIR DISKUS 100/50 [Concomitant]

REACTIONS (3)
  - COELIAC DISEASE [None]
  - EPISTAXIS [None]
  - SINUSITIS [None]
